FAERS Safety Report 25083597 (Version 1)
Quarter: 2025Q1

REPORT INFORMATION
  Report Type: Spontaneous
  Country: US (occurrence: US)
  Receive Date: 20250317
  Receipt Date: 20250317
  Transmission Date: 20250409
  Serious: Yes (Hospitalization)
  Sender: MYLAN
  Company Number: US-MYLANLABS-2025M1020766

PATIENT
  Age: 63 Year
  Sex: Female

DRUGS (5)
  1. DEXAMETHASONE SODIUM PHOSPHATE [Suspect]
     Active Substance: DEXAMETHASONE SODIUM PHOSPHATE
     Indication: Myelitis
     Dosage: 4 MILLIGRAM, TID, 3 TIMES A DAY
  2. PACLITAXEL [Concomitant]
     Active Substance: PACLITAXEL
     Indication: Triple negative breast cancer
  3. PACLITAXEL [Concomitant]
     Active Substance: PACLITAXEL
     Indication: BRCA2 gene mutation
  4. CARBOPLATIN [Concomitant]
     Active Substance: CARBOPLATIN
     Indication: Triple negative breast cancer
  5. CARBOPLATIN [Concomitant]
     Active Substance: CARBOPLATIN
     Indication: BRCA2 gene mutation

REACTIONS (1)
  - Drug ineffective [Unknown]
